FAERS Safety Report 20120647 (Version 1)
Quarter: 2021Q4

REPORT INFORMATION
  Report Type: Spontaneous
  Country: US (occurrence: US)
  Receive Date: 20211126
  Receipt Date: 20211126
  Transmission Date: 20220303
  Serious: Yes (Other)
  Sender: FDA-Public Use
  Company Number: US-SA-SAC20211124000075

PATIENT
  Age: 48 Year
  Sex: Male

DRUGS (1)
  1. ZANTAC [Suspect]
     Active Substance: RANITIDINE HYDROCHLORIDE
     Indication: Gastric ulcer
     Dosage: UNK UNK, QD
     Dates: start: 198301, end: 201910

REACTIONS (4)
  - Bladder cancer [Unknown]
  - Lung neoplasm malignant [Unknown]
  - Non-Hodgkin^s lymphoma [Unknown]
  - Thyroid cancer stage 0 [Unknown]

NARRATIVE: CASE EVENT DATE: 20020101
